FAERS Safety Report 17084047 (Version 1)
Quarter: 2019Q4

REPORT INFORMATION
  Report Type: Spontaneous
  Country: FR (occurrence: FR)
  Receive Date: 20191127
  Receipt Date: 20191127
  Transmission Date: 20200122
  Serious: Yes (Hospitalization, Other)
  Sender: FDA-Public Use
  Company Number: FR-SA-2019SA325209

PATIENT
  Age: 38 Year
  Sex: Male

DRUGS (1)
  1. INDAPAMIDE. [Suspect]
     Active Substance: INDAPAMIDE
     Indication: HYPERTENSION
     Dosage: 2.5 MG, QD

REACTIONS (6)
  - Acute myopia [Recovering/Resolving]
  - Blindness [Recovering/Resolving]
  - Flat anterior chamber of eye [Recovering/Resolving]
  - Chorioretinal folds [Recovering/Resolving]
  - Visual acuity tests abnormal [Recovering/Resolving]
  - Choroidal detachment [Recovering/Resolving]
